FAERS Safety Report 5941291-5 (Version None)
Quarter: 2008Q4

REPORT INFORMATION
  Report Type: 
  Country: None (occurrence: None)
  Receive Date: 20081103
  Receipt Date: 20081103
  Transmission Date: 20090506
  Serious: No
  Sender: FDA-Public Use
  Company Number: None

PATIENT
  Age: 28 Year
  Sex: Female
  Weight: 65 kg

DRUGS (1)
  1. TRAMADOL HCL [Suspect]
     Indication: OTITIS EXTERNA
     Dosage: 100MG ONCE PO
     Route: 048
     Dates: start: 20081031, end: 20081031

REACTIONS (4)
  - DRUG INEFFECTIVE [None]
  - MALAISE [None]
  - NAUSEA [None]
  - VOMITING [None]
